FAERS Safety Report 21041371 (Version 1)
Quarter: 2022Q3

REPORT INFORMATION
  Report Type: Spontaneous
  Country: US (occurrence: US)
  Receive Date: 20220705
  Receipt Date: 20220705
  Transmission Date: 20221027
  Serious: Yes (Other)
  Sender: FDA-Public Use
  Company Number: US-NOVOPROD-933214

PATIENT
  Age: 80 Year
  Sex: Male

DRUGS (3)
  1. OZEMPIC [Suspect]
     Active Substance: SEMAGLUTIDE
     Dosage: UNK
     Route: 058
     Dates: start: 2022
  2. OZEMPIC [Suspect]
     Active Substance: SEMAGLUTIDE
     Indication: Type 2 diabetes mellitus
     Dosage: 1 MG, QW
     Route: 058
     Dates: start: 202204, end: 2022
  3. TRULICITY [Concomitant]
     Active Substance: DULAGLUTIDE
     Indication: Product used for unknown indication
     Dosage: UNK
     Route: 058
     Dates: start: 20220603

REACTIONS (5)
  - Gastric ulcer [Recovered/Resolved]
  - Abdominal pain upper [Recovered/Resolved]
  - Product intolerance [Unknown]
  - Glycosylated haemoglobin abnormal [Not Recovered/Not Resolved]
  - Off label use [Not Recovered/Not Resolved]

NARRATIVE: CASE EVENT DATE: 20220401
